FAERS Safety Report 24046087 (Version 1)
Quarter: 2024Q3

REPORT INFORMATION
  Report Type: Spontaneous
  Country: CN (occurrence: CN)
  Receive Date: 20240703
  Receipt Date: 20240703
  Transmission Date: 20241016
  Serious: Yes (Hospitalization)
  Sender: ABBVIE
  Company Number: CN-ABBVIE-5819973

PATIENT
  Sex: Female
  Weight: 64 kg

DRUGS (6)
  1. VENETOCLAX [Suspect]
     Active Substance: VENETOCLAX
     Indication: Acute myeloid leukaemia
     Route: 048
     Dates: start: 20240607, end: 20240608
  2. VENETOCLAX [Suspect]
     Active Substance: VENETOCLAX
     Indication: Acute myeloid leukaemia
     Route: 048
     Dates: start: 20240606, end: 20240606
  3. VENETOCLAX [Suspect]
     Active Substance: VENETOCLAX
     Indication: Acute myeloid leukaemia
     Dosage: DOSE DECREASED
     Route: 048
     Dates: start: 20240609, end: 20240619
  4. VENETOCLAX [Suspect]
     Active Substance: VENETOCLAX
     Indication: Acute myeloid leukaemia
     Route: 048
     Dates: start: 20240605, end: 20240605
  5. AZACITIDINE [Suspect]
     Active Substance: AZACITIDINE
     Indication: Neoplasm malignant
     Route: 058
     Dates: start: 20240605, end: 20240605
  6. AZACITIDINE [Suspect]
     Active Substance: AZACITIDINE
     Indication: Neoplasm malignant
     Route: 058
     Dates: start: 20240606, end: 20240610

REACTIONS (7)
  - Myelosuppression [Recovering/Resolving]
  - Acute myeloid leukaemia [Recovering/Resolving]
  - Drug intolerance [Recovering/Resolving]
  - Depressed mood [Recovering/Resolving]
  - Rales [Recovering/Resolving]
  - Breath sounds abnormal [Recovering/Resolving]
  - White blood cell count increased [Recovering/Resolving]

NARRATIVE: CASE EVENT DATE: 20240101
